FAERS Safety Report 8967716 (Version 1)
Quarter: 2012Q4

REPORT INFORMATION
  Report Type: Spontaneous
  Country: US (occurrence: None)
  Receive Date: 20121213
  Receipt Date: 20121213
  Transmission Date: 20130627
  Serious: Yes (Hospitalization, Other)
  Sender: FDA-Public Use
  Company Number: None

PATIENT
  Age: 63 Year
  Sex: Male

DRUGS (1)
  1. VICTOZA [Suspect]
     Route: 058
     Dates: start: 20120701, end: 20120808

REACTIONS (2)
  - Diarrhoea [None]
  - Pancreatitis acute [None]
